FAERS Safety Report 8263461-6 (Version None)
Quarter: 2012Q2

REPORT INFORMATION
  Report Type: 
  Country: None (occurrence: None)
  Receive Date: 20120405
  Receipt Date: 20120330
  Transmission Date: 20120825
  Serious: Yes (Hospitalization, Other)
  Sender: FDA-Public Use
  Company Number: CA-ABBOTT-11P-028-0843308-00

PATIENT
  Sex: Male
  Weight: 81.72 kg

DRUGS (1)
  1. LUPRON DEPOT [Suspect]
     Indication: PROSTATE CANCER
     Route: 030
     Dates: start: 20090101

REACTIONS (4)
  - PAIN IN EXTREMITY [None]
  - MOBILITY DECREASED [None]
  - PROSTATE CANCER METASTATIC [None]
  - BONE NEOPLASM MALIGNANT [None]
